FAERS Safety Report 6050568-7 (Version None)
Quarter: 2009Q1

REPORT INFORMATION
  Report Type: 
  Country: None (occurrence: None)
  Receive Date: 20090122
  Receipt Date: 20090122
  Transmission Date: 20090719
  Serious: No
  Sender: FDA-Public Use
  Company Number: None

PATIENT
  Sex: Male
  Weight: 128.91 kg

DRUGS (1)
  1. DOCETAXEL [Suspect]
     Dosage: 187.5 MG

REACTIONS (1)
  - NEUTROPHIL COUNT DECREASED [None]
